FAERS Safety Report 7212902-1 (Version None)
Quarter: 2010Q4

REPORT INFORMATION
  Report Type: 
  Country: None (occurrence: None)
  Receive Date: 20101229
  Receipt Date: 20101214
  Transmission Date: 20110411
  Serious: Yes (Death, Other)
  Sender: FDA-Public Use
  Company Number: 012334

PATIENT
  Age: 4 Year

DRUGS (2)
  1. BUSULFEX [Suspect]
     Indication: CHEMOTHERAPY
     Dosage: INTRAVENOUS
     Route: 042
  2. MELPHALAN [Concomitant]

REACTIONS (2)
  - MEDULLOBLASTOMA RECURRENT [None]
  - MENINGEAL DISORDER [None]
